FAERS Safety Report 6582446-9 (Version None)
Quarter: 2010Q1

REPORT INFORMATION
  Report Type: 
  Country: None (occurrence: None)
  Receive Date: 20100216
  Receipt Date: 20100203
  Transmission Date: 20100710
  Serious: Yes (Other)
  Sender: FDA-Public Use
  Company Number: PHHY2009JP42644

PATIENT
  Age: 72 Year
  Sex: Male

DRUGS (5)
  1. DIOVAN [Suspect]
     Indication: HYPERTENSION
     Dosage: 160 MG, QD
     Route: 048
     Dates: start: 20090612, end: 20090930
  2. DIOVAN [Suspect]
     Dosage: UNK
  3. PLETAL [Suspect]
     Dosage: UNK
     Route: 048
     Dates: start: 20090619, end: 20090930
  4. ADALAT CC [Concomitant]
     Dosage: 40 MG
     Route: 048
     Dates: start: 20090612
  5. BASEN [Concomitant]
     Dosage: UNK
     Route: 048
     Dates: start: 20090718, end: 20090930

REACTIONS (5)
  - ANAEMIA [None]
  - ASCITES [None]
  - OEDEMA PERIPHERAL [None]
  - WEIGHT INCREASED [None]
  - WHITE BLOOD CELL COUNT DECREASED [None]
